FAERS Safety Report 6483428-8 (Version None)
Quarter: 2009Q4

REPORT INFORMATION
  Report Type: 
  Country: None (occurrence: None)
  Receive Date: 20091209
  Receipt Date: 20091201
  Transmission Date: 20100525
  Serious: Yes (Other)
  Sender: FDA-Public Use
  Company Number: US-PFIZER INC-2009182735

PATIENT
  Sex: Male
  Weight: 63.492 kg

DRUGS (4)
  1. DILANTIN-125 [Suspect]
     Indication: CONVULSION
     Dosage: 100 MG, 5X/DAY
  2. ZOLOFT [Suspect]
     Dosage: 50 MG, 1X/DAY
  3. TEGRETOL [Concomitant]
     Dosage: 4 PILLS, 2X/DAY
  4. PRANDIN [Concomitant]
     Dosage: 200 MG, UNK

REACTIONS (2)
  - CONVULSION [None]
  - HEPATITIS [None]
